FAERS Safety Report 19157699 (Version 1)
Quarter: 2021Q2

REPORT INFORMATION
  Report Type: Spontaneous
  Country: US (occurrence: US)
  Receive Date: 20210419
  Receipt Date: 20210419
  Transmission Date: 20210717
  Serious: Yes (Hospitalization)
  Sender: FDA-Public Use
  Company Number: None

PATIENT
  Age: 67 Year
  Sex: Female

DRUGS (19)
  1. ATENOLOL 50MG [Concomitant]
     Active Substance: ATENOLOL
     Dates: start: 20190603
  2. INVOKANA [Concomitant]
     Active Substance: CANAGLIFLOZIN
     Dates: start: 20190703
  3. MECLIZINE 12.5MG [Concomitant]
  4. METFORMIN [Concomitant]
     Active Substance: METFORMIN HYDROCHLORIDE
     Dates: start: 20190401
  5. PERCOCET 7.5MG [Concomitant]
     Dates: start: 20190827
  6. PENICILLIN VK 250MG [Concomitant]
     Dates: start: 20200609
  7. CELECOXIB 200MG [Concomitant]
     Active Substance: CELECOXIB
     Dates: start: 20190729
  8. EXEMESTANE 25MG [Concomitant]
     Active Substance: EXEMESTANE
     Dates: start: 20210107
  9. PREGABALIN 200MG [Concomitant]
     Active Substance: PREGABALIN
     Dates: start: 20190815
  10. AMLODIPINE [Concomitant]
     Active Substance: AMLODIPINE BESYLATE
     Dates: start: 20190628
  11. ATORVASTATIN 40MG [Concomitant]
     Active Substance: ATORVASTATIN
     Dates: start: 20190703
  12. POTASSIUM 10MEQ [Concomitant]
     Dates: start: 20210209
  13. TRIAMCINOLONE 0.1% CREAM [Concomitant]
     Active Substance: TRIAMCINOLONE ACETONIDE
     Dates: start: 20200707
  14. METOCLOPRAMIDE 5MG [Concomitant]
     Active Substance: METOCLOPRAMIDE
     Dates: start: 20190517
  15. OLMESARTAN 40MG [Concomitant]
     Active Substance: OLMESARTAN
     Dates: start: 20181114
  16. AFINITOR [Suspect]
     Active Substance: EVEROLIMUS
     Indication: NEOPLASM MALIGNANT
     Route: 048
     Dates: start: 20210202
  17. CYCLOBENZAPRINE 10MG [Concomitant]
     Active Substance: CYCLOBENZAPRINE
     Dates: start: 20190318
  18. GLIMEPIRIDE 4MG [Concomitant]
     Active Substance: GLIMEPIRIDE
     Dates: start: 20181114
  19. OMEPRAZOLE 10MG [Concomitant]
     Active Substance: OMEPRAZOLE
     Dates: start: 20181107

REACTIONS (1)
  - Renal failure [None]

NARRATIVE: CASE EVENT DATE: 20210408
